FAERS Safety Report 6932790-8 (Version None)
Quarter: 2010Q3

REPORT INFORMATION
  Report Type: 
  Country: None (occurrence: None)
  Receive Date: 20100819
  Receipt Date: 20100810
  Transmission Date: 20110219
  Serious: Yes (Death, Other)
  Sender: FDA-Public Use
  Company Number: BR-PFIZER INC-2010096751

PATIENT
  Age: 66 Year
  Sex: Male
  Weight: 72 kg

DRUGS (1)
  1. VIAGRA [Suspect]
     Indication: ERECTILE DYSFUNCTION
     Dosage: 50 MG, UNK
     Route: 048
     Dates: start: 20070101, end: 20090101

REACTIONS (3)
  - DIABETES MELLITUS [None]
  - MULTIPLE MYELOMA [None]
  - PNEUMONIA [None]
